FAERS Safety Report 8546869-0 (Version None)
Quarter: 2012Q3

REPORT INFORMATION
  Report Type: 
  Country: None (occurrence: None)
  Receive Date: 20120727
  Receipt Date: 20120113
  Transmission Date: 20120928
  Serious: No
  Sender: FDA-Public Use
  Company Number: US-ASTRAZENECA-2012SE02759

PATIENT
  Age: 41 Year
  Sex: Female
  Weight: 72.6 kg

DRUGS (12)
  1. LISINOPRIL AND HYDROCHLOROTHIAZIDE [Concomitant]
  2. PRILOSEC [Concomitant]
  3. VALIUM [Concomitant]
  4. SEROQUEL XR [Suspect]
     Indication: BIPOLAR DISORDER
     Route: 048
  5. ADDERALL 5 [Concomitant]
  6. ZOCOR [Concomitant]
  7. SEROQUEL XR [Suspect]
     Indication: SLEEP DISORDER
     Route: 048
  8. ZOLOFT [Concomitant]
  9. LITHIUM CARBONATE [Concomitant]
  10. SEROQUEL XR [Suspect]
     Route: 048
  11. SEROQUEL XR [Suspect]
     Route: 048
  12. XANAX [Concomitant]

REACTIONS (2)
  - DRUG INEFFECTIVE FOR UNAPPROVED INDICATION [None]
  - OFF LABEL USE [None]
